FAERS Safety Report 6937428-1 (Version None)
Quarter: 2010Q3

REPORT INFORMATION
  Report Type: 
  Country: None (occurrence: None)
  Receive Date: 20100823
  Receipt Date: 20100813
  Transmission Date: 20110219
  Serious: Yes (Hospitalization)
  Sender: FDA-Public Use
  Company Number: US-US-EMD SERONO, INC.-237904K09USA

PATIENT
  Sex: Female
  Weight: 117 kg

DRUGS (12)
  1. REBIF [Suspect]
     Indication: MULTIPLE SCLEROSIS
     Route: 058
     Dates: start: 20030101, end: 20030101
  2. REBIF [Suspect]
     Route: 058
     Dates: start: 20040101
  3. DIOVAN [Concomitant]
     Indication: HYPERTENSION
     Route: 065
  4. ATENOLOL [Concomitant]
     Indication: HYPERTENSION
     Route: 065
  5. CLONIDINE [Concomitant]
     Indication: HYPERTENSION
     Route: 065
  6. METFORMIN [Concomitant]
     Indication: DIABETES MELLITUS
     Route: 065
  7. GLIPIZIDE [Concomitant]
     Indication: DIABETES MELLITUS
     Route: 065
  8. ZYRTEC [Concomitant]
     Indication: HYPERSENSITIVITY
     Route: 065
  9. HYDROCODONE BITARTRATE [Concomitant]
     Indication: ARTHRALGIA
     Route: 065
  10. LASIX [Concomitant]
     Route: 065
  11. SIMVASTATIN [Concomitant]
     Route: 065
  12. ACIPHEX [Concomitant]
     Route: 065

REACTIONS (8)
  - ARTHRITIS [None]
  - HYPERSENSITIVITY [None]
  - HYPERTENSION [None]
  - INJECTION SITE HAEMATOMA [None]
  - INJECTION SITE INDURATION [None]
  - MULTIPLE SCLEROSIS RELAPSE [None]
  - MUSCLE TIGHTNESS [None]
  - STRESS FRACTURE [None]
